FAERS Safety Report 10970241 (Version 1)
Quarter: 2015Q1

REPORT INFORMATION
  Report Type: Spontaneous
  Country: HR (occurrence: HR)
  Receive Date: 20150331
  Receipt Date: 20150331
  Transmission Date: 20150721
  Serious: Yes (Life-Threatening, Other)
  Sender: FDA-Public Use
  Company Number: HR-PFIZER INC-2015110204

PATIENT
  Age: 74 Year
  Sex: Female

DRUGS (5)
  1. VANCOMYCIN [Interacting]
     Active Substance: VANCOMYCIN
     Indication: STAPHYLOCOCCAL INFECTION
     Dosage: 1 G, 2X/DAY
     Route: 042
     Dates: start: 20141101, end: 20141122
  2. FRAXIPARINE [Concomitant]
     Active Substance: NADROPARIN CALCIUM
     Indication: THROMBOSIS PROPHYLAXIS
     Dosage: 0.4 ML, 1X/DAY
     Route: 058
     Dates: start: 20131027, end: 20141128
  3. PIPERACILLIN/TAZOBACTAM [Suspect]
     Active Substance: PIPERACILLIN SODIUM\TAZOBACTAM SODIUM
     Indication: CITROBACTER INFECTION
     Dosage: 4.5 MG, 3X/DAY
     Route: 042
     Dates: start: 20141101, end: 20141115
  4. MERONEM [Interacting]
     Active Substance: MEROPENEM
     Indication: CITROBACTER INFECTION
     Dosage: 1 G, 3X/DAY
     Route: 042
     Dates: start: 20141118, end: 20141124
  5. CONTROLOC [Concomitant]
     Active Substance: PANTOPRAZOLE SODIUM
     Indication: PROPHYLAXIS AGAINST GASTROINTESTINAL ULCER
     Dosage: 40 MG, 1X/DAY
     Route: 042
     Dates: start: 20121027, end: 20141128

REACTIONS (2)
  - Drug interaction [Not Recovered/Not Resolved]
  - Toxic epidermal necrolysis [Not Recovered/Not Resolved]

NARRATIVE: CASE EVENT DATE: 20141121
